FAERS Safety Report 8209574-6 (Version None)
Quarter: 2012Q1

REPORT INFORMATION
  Report Type: 
  Country: None (occurrence: None)
  Receive Date: 20120314
  Receipt Date: 20120313
  Transmission Date: 20120608
  Serious: No
  Sender: FDA-Public Use
  Company Number: US-PFIZER INC-2012066903

PATIENT
  Sex: Male
  Weight: 77.1 kg

DRUGS (4)
  1. VENTOLIN [Concomitant]
     Indication: DYSPNOEA
     Dosage: UNK
  2. CHANTIX [Suspect]
     Indication: SMOKING CESSATION THERAPY
     Dosage: 0.5 MG, 1X/DAY
     Route: 048
  3. CHANTIX [Suspect]
     Dosage: 0.5 MG, 1X/DAY
     Route: 048
     Dates: start: 20110101, end: 20110101
  4. SPIRIVA [Concomitant]
     Indication: DYSPNOEA
     Dosage: UNK

REACTIONS (2)
  - VOMITING [None]
  - MALAISE [None]
